FAERS Safety Report 9981489 (Version 1)
Quarter: 2014Q1

REPORT INFORMATION
  Report Type: Spontaneous
  Country: US (occurrence: US)
  Receive Date: 20140307
  Receipt Date: 20140307
  Transmission Date: 20141002
  Serious: No
  Sender: FDA-Public Use
  Company Number: US-GLAXOSMITHKLINE-A1053941A

PATIENT
  Age: 40 Year
  Sex: Female

DRUGS (2)
  1. FABIOR [Suspect]
     Indication: ACNE
     Route: 061
     Dates: start: 201311, end: 201311
  2. DORYX [Concomitant]

REACTIONS (5)
  - Erythema [Unknown]
  - Pruritus [Unknown]
  - Local swelling [Unknown]
  - Burning sensation [Unknown]
  - Scab [Unknown]
